FAERS Safety Report 6371822-5 (Version None)
Quarter: 2009Q3

REPORT INFORMATION
  Report Type: 
  Country: None (occurrence: None)
  Receive Date: 20090923
  Receipt Date: 20090915
  Transmission Date: 20100115
  Serious: Yes (Other)
  Sender: FDA-Public Use
  Company Number: US-SANOFI-SYNTHELABO-A03200904154

PATIENT
  Sex: Female

DRUGS (8)
  1. RESTORIL [Concomitant]
     Indication: INSOMNIA
     Route: 048
  2. DARVOCET [Concomitant]
     Indication: PAIN
     Route: 048
  3. DARVOCET [Concomitant]
     Indication: FIBROMYALGIA
     Route: 048
  4. COUMADIN [Concomitant]
     Indication: DRUG USE FOR UNKNOWN INDICATION
     Dosage: 2.5 AND 5MG ALTERNATING DAILY
     Route: 048
  5. SYNTHROID [Concomitant]
     Indication: HYPOTHYROIDISM
     Route: 048
  6. HYDRALAZINE HCL [Concomitant]
     Indication: HYPERTENSION
     Route: 048
  7. TOPROL-XL [Concomitant]
     Indication: ATRIAL FIBRILLATION
     Route: 048
  8. MULTAQ [Suspect]
     Indication: ATRIAL FIBRILLATION
     Route: 048
     Dates: start: 20090801

REACTIONS (6)
  - ATRIAL FIBRILLATION [None]
  - CHEST DISCOMFORT [None]
  - CONSTIPATION [None]
  - FATIGUE [None]
  - URINE OUTPUT DECREASED [None]
  - WEIGHT INCREASED [None]
